FAERS Safety Report 13435782 (Version 1)
Quarter: 2017Q2

REPORT INFORMATION
  Report Type: Spontaneous
  Country: US (occurrence: US)
  Receive Date: 20170412
  Receipt Date: 20170412
  Transmission Date: 20170830
  Serious: No
  Sender: FDA-Public Use
  Company Number: US-SA-2016SA120689

PATIENT
  Age: 66 Year
  Sex: Female

DRUGS (1)
  1. ALLEGRA ALLERGY [Suspect]
     Active Substance: FEXOFENADINE HYDROCHLORIDE
     Indication: MULTIPLE ALLERGIES
     Dosage: TABLET IN THE MORNING, ANOTHER TABLET IN THE?EVENING,
     Route: 048

REACTIONS (2)
  - Extra dose administered [Unknown]
  - Intentional product misuse [Unknown]
